FAERS Safety Report 5774765-0 (Version None)
Quarter: 2008Q2

REPORT INFORMATION
  Report Type: 
  Country: None (occurrence: None)
  Receive Date: 20080616
  Receipt Date: 20080616
  Transmission Date: 20081010
  Serious: Yes (Hospitalization)
  Sender: FDA-Public Use
  Company Number: None

PATIENT
  Age: 26 Year
  Sex: Male

DRUGS (1)
  1. GEODON [Suspect]
     Indication: SCHIZOPHRENIA
     Dosage: 80MG BID PO
     Route: 048
     Dates: start: 20080401, end: 20080519

REACTIONS (1)
  - BLOOD CREATINE PHOSPHOKINASE INCREASED [None]
